FAERS Safety Report 7344206-0 (Version None)
Quarter: 2011Q1

REPORT INFORMATION
  Report Type: 
  Country: None (occurrence: None)
  Receive Date: 20110310
  Receipt Date: 20100818
  Transmission Date: 20110831
  Serious: No
  Sender: FDA-Public Use
  Company Number: A0876478A

PATIENT
  Age: 34 Year
  Sex: Male

DRUGS (1)
  1. NICORETTE [Suspect]
     Indication: WEIGHT LOSS DIET
     Route: 002
     Dates: start: 20100101

REACTIONS (8)
  - DENTAL CARIES [None]
  - TOOTH LOSS [None]
  - PREMATURE AGEING [None]
  - INTENTIONAL DRUG MISUSE [None]
  - OFF LABEL USE [None]
  - INSOMNIA [None]
  - SKIN ULCER [None]
  - NICOTINE DEPENDENCE [None]
